FAERS Safety Report 19034341 (Version 5)
Quarter: 2022Q3

REPORT INFORMATION
  Report Type: Report from Study
  Country: JP (occurrence: JP)
  Receive Date: 20210319
  Receipt Date: 20220714
  Transmission Date: 20221027
  Serious: Yes (Other)
  Sender: FDA-Public Use
  Company Number: JP-GLAXOSMITHKLINE-JP2021JPN062892

PATIENT

DRUGS (24)
  1. BELIMUMAB [Suspect]
     Active Substance: BELIMUMAB
     Indication: Systemic lupus erythematosus
     Dosage: 10 MG/KG, ONCE IN 2 WEEKS
     Route: 041
     Dates: start: 20180319, end: 20180402
  2. BELIMUMAB [Suspect]
     Active Substance: BELIMUMAB
     Indication: Central nervous system lupus
     Dosage: 10 MG/KG, ONCE IN 4 WEEKS
     Route: 041
     Dates: start: 20180509, end: 20180808
  3. BELIMUMAB [Suspect]
     Active Substance: BELIMUMAB
     Dosage: 10 MG/KG, ONCE IN 4 WEEKS
     Route: 041
     Dates: start: 20180907, end: 20181005
  4. PREDNISOLONE [Suspect]
     Active Substance: PREDNISOLONE
     Indication: Systemic lupus erythematosus
     Dosage: 50 MG, 1D
     Route: 048
     Dates: start: 20180219, end: 20180319
  5. PREDNISOLONE [Suspect]
     Active Substance: PREDNISOLONE
     Indication: Central nervous system lupus
     Dosage: 40 MG, 1D
     Route: 048
     Dates: start: 20180320, end: 20180327
  6. PREDNISOLONE [Suspect]
     Active Substance: PREDNISOLONE
     Dosage: 30 MG, 1D
     Route: 048
     Dates: start: 20180328, end: 20180409
  7. PREDNISOLONE [Suspect]
     Active Substance: PREDNISOLONE
     Dosage: 20 MG, 1D
     Route: 048
     Dates: start: 20180410, end: 20180509
  8. PREDNISOLONE [Suspect]
     Active Substance: PREDNISOLONE
     Dosage: 17.5 MG, 1D
     Route: 048
     Dates: start: 20180510, end: 20180523
  9. PREDNISOLONE [Suspect]
     Active Substance: PREDNISOLONE
     Dosage: 15 MG, 1D
     Route: 048
     Dates: start: 20180524, end: 20180619
  10. PREDNISOLONE [Suspect]
     Active Substance: PREDNISOLONE
     Dosage: 12.5 MG, 1D
     Route: 048
     Dates: start: 20180620, end: 20180703
  11. PREDNISOLONE [Suspect]
     Active Substance: PREDNISOLONE
     Dosage: 10 MG, 1D
     Route: 048
     Dates: start: 20180704, end: 20180807
  12. PREDNISOLONE [Suspect]
     Active Substance: PREDNISOLONE
     Dosage: 15 MG, 1D
     Route: 048
     Dates: start: 20180808, end: 20180906
  13. PREDNISOLONE [Suspect]
     Active Substance: PREDNISOLONE
     Dosage: 10 MG, 1D
     Route: 048
     Dates: start: 20180907
  14. VONOPRAZAN FUMARATE [Concomitant]
     Active Substance: VONOPRAZAN FUMARATE
  15. RISPERIDONE [Concomitant]
     Active Substance: RISPERIDONE
     Indication: Systemic lupus erythematosus
  16. RISPERIDONE [Concomitant]
     Active Substance: RISPERIDONE
     Indication: Central nervous system lupus
  17. ELDECALCITOL [Concomitant]
     Active Substance: ELDECALCITOL
  18. FUNGIZONE ORAL SUSPENSION [Concomitant]
     Indication: Antifungal prophylaxis
  19. LINAGLIPTIN [Concomitant]
     Active Substance: LINAGLIPTIN
  20. SULFAMETHOXAZOLE\TRIMETHOPRIM [Concomitant]
     Active Substance: SULFAMETHOXAZOLE\TRIMETHOPRIM
     Indication: Antifungal prophylaxis
     Dosage: UNK
  21. CELLCEPT [Concomitant]
     Active Substance: MYCOPHENOLATE MOFETIL
     Indication: Systemic lupus erythematosus
  22. CELLCEPT [Concomitant]
     Active Substance: MYCOPHENOLATE MOFETIL
     Indication: Central nervous system lupus
  23. MENATETRENONE [Concomitant]
     Active Substance: MENATETRENONE
     Indication: Osteoporosis prophylaxis
  24. CYCLOPHOSPHAMIDE [Suspect]
     Active Substance: CYCLOPHOSPHAMIDE
     Dosage: UNK
     Dates: start: 20180223

REACTIONS (3)
  - Cytomegalovirus infection [Recovered/Resolved]
  - Cystitis [Recovered/Resolved]
  - Back pain [Recovered/Resolved]

NARRATIVE: CASE EVENT DATE: 20180405
